FAERS Safety Report 19020644 (Version 1)
Quarter: 2021Q1

REPORT INFORMATION
  Report Type: Spontaneous
  Country: JP (occurrence: JP)
  Receive Date: 20210317
  Receipt Date: 20210317
  Transmission Date: 20210420
  Serious: Yes (Other)
  Sender: FDA-Public Use
  Company Number: JP-PFIZER INC-2021253035

PATIENT
  Age: 7 Decade
  Sex: Female

DRUGS (3)
  1. FULVESTRANT. [Suspect]
     Active Substance: FULVESTRANT
     Dosage: UNK
  2. IBRANCE [Suspect]
     Active Substance: PALBOCICLIB
     Dosage: UNK
  3. RANMARK [Suspect]
     Active Substance: DENOSUMAB
     Dosage: UNK

REACTIONS (2)
  - Drug eruption [Recovering/Resolving]
  - Neutrophil count decreased [Recovering/Resolving]
